FAERS Safety Report 8178515-2 (Version None)
Quarter: 2012Q1

REPORT INFORMATION
  Report Type: 
  Country: None (occurrence: None)
  Receive Date: 20120301
  Receipt Date: 20120222
  Transmission Date: 20120608
  Serious: Yes (Congenital Anomaly)
  Sender: FDA-Public Use
  Company Number: PHHY2012US016540

PATIENT

DRUGS (3)
  1. LAMOTRIGINE [Suspect]
     Route: 064
  2. VALPROIC ACID [Suspect]
     Route: 064
  3. PHENYTOIN [Suspect]
     Route: 064

REACTIONS (5)
  - FOETAL EXPOSURE DURING PREGNANCY [None]
  - TALIPES [None]
  - DEXTROCARDIA [None]
  - FINGER DEFORMITY [None]
  - SYNOSTOSIS [None]
